FAERS Safety Report 4796717-X (Version None)
Quarter: 2005Q3

REPORT INFORMATION
  Report Type: 
  Country: None (occurrence: None)
  Receive Date: 20050916
  Receipt Date: 20041103
  Transmission Date: 20060218
  Serious: Yes (Hospitalization)
  Sender: FDA-Public Use
  Company Number: US-JNJFOC-20041101529

PATIENT
  Age: 45 Year
  Sex: Female
  Weight: 52.1637 kg

DRUGS (1)
  1. TOPAMAX [Suspect]
     Indication: MULTIPLE SCLEROSIS
     Dosage: (HIGH DOSE-NOT SURE OF EXACT DOSE)

REACTIONS (1)
  - CONVULSION [None]
